FAERS Safety Report 7260159-8 (Version None)
Quarter: 2011Q1

REPORT INFORMATION
  Report Type: 
  Country: None (occurrence: None)
  Receive Date: 20110130
  Receipt Date: 20101007
  Transmission Date: 20110831
  Serious: No
  Sender: FDA-Public Use
  Company Number: US-ABBOTT-10P-163-0676808-00

PATIENT
  Age: 34 Year
  Sex: Male

DRUGS (8)
  1. HUMIRA [Suspect]
     Indication: PSORIATIC ARTHROPATHY
     Dates: start: 20070901
  2. ZOLPIDEM [Concomitant]
     Indication: INSOMNIA
  3. NEXIUM [Concomitant]
     Indication: GASTROOESOPHAGEAL REFLUX DISEASE
  4. WELLBUTRIN XL [Concomitant]
     Indication: EX-TOBACCO USER
  5. WELLBUTRIN XL [Concomitant]
     Indication: DEPRESSION
  6. DOXYCYCLINE [Concomitant]
     Indication: ARTHRITIS
  7. FLUVOXETINE HCL [Concomitant]
     Indication: DEPRESSION
  8. NEXIUM [Concomitant]
     Indication: HIATUS HERNIA

REACTIONS (2)
  - PALPITATIONS [None]
  - INJECTION SITE PAIN [None]
